FAERS Safety Report 5918885-6 (Version None)
Quarter: 2008Q4

REPORT INFORMATION
  Report Type: 
  Country: None (occurrence: None)
  Receive Date: 20081015
  Receipt Date: 20081006
  Transmission Date: 20090506
  Serious: Yes (Disabling)
  Sender: FDA-Public Use
  Company Number: BR-BAYER-200819030LA

PATIENT
  Age: 60 Year
  Sex: Female
  Weight: 62 kg

DRUGS (3)
  1. ANGELIQ [Suspect]
     Indication: MENOPAUSAL SYMPTOMS
     Route: 048
     Dates: start: 20080101, end: 20081006
  2. RIVOTRIL [Concomitant]
     Indication: DEPRESSION
     Route: 048
     Dates: start: 19680101
  3. FLUOXETINE [Concomitant]
     Indication: ANXIETY
     Route: 048
     Dates: start: 19680101

REACTIONS (3)
  - AGEUSIA [None]
  - DRY MOUTH [None]
  - OESOPHAGEAL DISORDER [None]
